FAERS Safety Report 6329515-6 (Version None)
Quarter: 2009Q3

REPORT INFORMATION
  Report Type: 
  Country: None (occurrence: None)
  Receive Date: 20090826
  Receipt Date: 20090817
  Transmission Date: 20100115
  Serious: Yes (Hospitalization, Other)
  Sender: FDA-Public Use
  Company Number: CA-GENENTECH-274841

PATIENT
  Sex: Male
  Weight: 109 kg

DRUGS (8)
  1. OMALIZUMAB [Suspect]
     Indication: ASTHMA
     Dosage: 300 MG, Q2W
     Route: 058
     Dates: start: 20061117
  2. OMALIZUMAB [Suspect]
     Dosage: 300 MG, UNK
     Route: 058
     Dates: start: 20071203
  3. VENTOLIN [Concomitant]
     Indication: DRUG USE FOR UNKNOWN INDICATION
  4. VENTOLIN [Concomitant]
  5. ATROVENT [Concomitant]
     Indication: DRUG USE FOR UNKNOWN INDICATION
  6. ATROVENT [Concomitant]
     Dosage: 10 MG, UNK
  7. SYMBICORT [Concomitant]
     Indication: DRUG USE FOR UNKNOWN INDICATION
  8. CHEMOTHERAPY (UNK INGREDIENTS) [Concomitant]
     Indication: DRUG USE FOR UNKNOWN INDICATION
     Dosage: UNK

REACTIONS (16)
  - ACTIVITIES OF DAILY LIVING IMPAIRED [None]
  - ASTHMA [None]
  - CARDIAC FAILURE CONGESTIVE [None]
  - CHRONIC OBSTRUCTIVE PULMONARY DISEASE [None]
  - COUGH [None]
  - DYSPNOEA [None]
  - LUNG NEOPLASM MALIGNANT [None]
  - MALAISE [None]
  - PROSTATE CANCER [None]
  - PROSTATIC SPECIFIC ANTIGEN INCREASED [None]
  - PULMONARY EMBOLISM [None]
  - RALES [None]
  - RESPIRATORY DISTRESS [None]
  - RESPIRATORY RATE INCREASED [None]
  - RESPIRATORY TRACT CONGESTION [None]
  - TACHYPNOEA [None]
